FAERS Safety Report 5366909-X (Version None)
Quarter: 2007Q2

REPORT INFORMATION
  Report Type: 
  Country: None (occurrence: None)
  Receive Date: 20070622
  Receipt Date: 20070206
  Transmission Date: 20071010
  Serious: No
  Sender: FDA-Public Use
  Company Number: US-ASTRAZENECA-2007UW02558

PATIENT
  Age: 3 Year

DRUGS (1)
  1. RHINOCORT [Suspect]
     Route: 045

REACTIONS (5)
  - ACCIDENTAL OVERDOSE [None]
  - HYPERSENSITIVITY [None]
  - MEDICATION ERROR [None]
  - RASH [None]
  - RHINORRHOEA [None]
